FAERS Safety Report 10169203 (Version 1)
Quarter: 2014Q2

REPORT INFORMATION
  Report Type: Spontaneous
  Country: CA (occurrence: CA)
  Receive Date: 20140513
  Receipt Date: 20140513
  Transmission Date: 20141212
  Serious: Yes (Other)
  Sender: FDA-Public Use
  Company Number: CA-ELI_LILLY_AND_COMPANY-CA201405001033

PATIENT
  Age: 58 Year
  Sex: Female

DRUGS (2)
  1. CYMBALTA [Suspect]
     Indication: PAIN
     Dosage: 30MG, X 1 PILL
     Route: 065
  2. CYMBALTA [Suspect]
     Indication: DEPRESSED MOOD

REACTIONS (4)
  - Benign neoplasm of adrenal gland [Unknown]
  - Multiple sclerosis [Unknown]
  - Nausea [Unknown]
  - Vomiting [Unknown]
